FAERS Safety Report 9597021 (Version 1)
Quarter: 2013Q4

REPORT INFORMATION
  Report Type: Report from Study
  Country: DE (occurrence: DE)
  Receive Date: 20131004
  Receipt Date: 20131004
  Transmission Date: 20140711
  Serious: Yes (Life-Threatening, Hospitalization)
  Sender: FDA-Public Use
  Company Number: DE-PFIZER INC-2013280925

PATIENT
  Age: 68 Year
  Sex: Male
  Weight: 79 kg

DRUGS (3)
  1. TEMSIROLIMUS [Suspect]
     Dosage: 50 MG, UNK
     Dates: start: 20130430, end: 20130724
  2. BENDAMUSTINE [Suspect]
     Dosage: 179 MG, UNK
     Dates: start: 20130429, end: 20130723
  3. RITUXIMAB [Suspect]
     Dosage: 745 MG, UNK
     Dates: start: 20130426, end: 20130722

REACTIONS (3)
  - Respiratory failure [Recovering/Resolving]
  - Sepsis [Recovering/Resolving]
  - Renal failure acute [Recovering/Resolving]
